FAERS Safety Report 9186553 (Version 2)
Quarter: 2013Q4

REPORT INFORMATION
  Report Type: Spontaneous
  Country: GB (occurrence: GB)
  Receive Date: 20130325
  Receipt Date: 20131011
  Transmission Date: 20140711
  Serious: Yes (Other)
  Sender: FDA-Public Use
  Company Number: GB-TEVA-393882ISR

PATIENT
  Sex: Male

DRUGS (3)
  1. NAPROXEN [Suspect]
     Indication: HERNIA PAIN
     Dosage: 250 MILLIGRAM DAILY;
     Route: 065
     Dates: start: 20120706
  2. NAPROXEN [Suspect]
     Dosage: 500 MILLIGRAM DAILY;
     Route: 065
  3. TRAMADOL [Concomitant]

REACTIONS (2)
  - Depression [Recovered/Resolved]
  - Suicidal ideation [Recovered/Resolved]
